FAERS Safety Report 5073777-2 (Version None)
Quarter: 2006Q3

REPORT INFORMATION
  Report Type: 
  Country: None (occurrence: None)
  Receive Date: 20060717
  Receipt Date: 20060131
  Transmission Date: 20061208
  Serious: No
  Sender: FDA-Public Use
  Company Number: 2006000256

PATIENT
  Age: 62 Year
  Sex: Male

DRUGS (5)
  1. TARCEVA [Suspect]
     Indication: NON-SMALL CELL LUNG CANCER
     Dosage: 150 MG (QD), ORAL
     Route: 048
     Dates: start: 20051212, end: 20060310
  2. REGLAN [Concomitant]
  3. PREDNISONE TAB [Concomitant]
  4. VITAMINS (VITAMINS) [Concomitant]
  5. BLOOD PRESSURE MEDICATIONS [Concomitant]

REACTIONS (4)
  - DYSPEPSIA [None]
  - ERUCTATION [None]
  - FEELING COLD [None]
  - VOMITING [None]
